FAERS Safety Report 7106562-8 (Version None)
Quarter: 2010Q4

REPORT INFORMATION
  Report Type: 
  Country: None (occurrence: None)
  Receive Date: 20101116
  Receipt Date: 20101110
  Transmission Date: 20110411
  Serious: Yes (Death, Hospitalization)
  Sender: FDA-Public Use
  Company Number: JP-ELI_LILLY_AND_COMPANY-JP201009006450

PATIENT
  Sex: Male
  Weight: 44 kg

DRUGS (11)
  1. GEMZAR [Suspect]
     Indication: BILE DUCT CANCER STAGE IV
     Dosage: 1400 MG, OTHER
     Route: 042
     Dates: start: 20091125, end: 20100910
  2. NAUZELIN [Concomitant]
     Dosage: 10 MG, 3/D
     Route: 048
     Dates: start: 20091010
  3. GASRICK D [Concomitant]
     Dosage: 20 MG, 2/D
     Route: 048
     Dates: start: 20091010
  4. VOLTAREN                                /SCH/ [Concomitant]
     Dosage: 1 D/F, AS NEEDED
     Route: 054
     Dates: start: 20091010
  5. SLOWHEIM [Concomitant]
     Dosage: 1 D/F, DAILY (1/D)
     Route: 048
     Dates: start: 20091117
  6. MAGMITT [Concomitant]
     Dosage: 500 MG, 3/D
     Route: 048
     Dates: start: 20091124
  7. DUROTEP [Concomitant]
     Dosage: 12.6 MG, OTHER
     Route: 062
     Dates: start: 20091127
  8. TEPRENONE [Concomitant]
     Dosage: 0.5 G, 3/D
     Route: 048
     Dates: start: 20091221
  9. FUROSEMIDE [Concomitant]
     Dosage: 20 MG, DAILY (1/D)
     Route: 048
     Dates: start: 20100129
  10. FEROTYM [Concomitant]
     Dosage: 100 MG, DAILY (1/D)
     Route: 048
     Dates: start: 20100723
  11. DAIKENTYUTO [Concomitant]
     Dosage: 2.5 G, 3/D
     Route: 048
     Dates: start: 20100915

REACTIONS (3)
  - ASPIRATION [None]
  - DYSPNOEA [None]
  - MALIGNANT PLEURAL EFFUSION [None]
